FAERS Safety Report 25662982 (Version 2)
Quarter: 2025Q4

REPORT INFORMATION
  Report Type: Report from Study
  Country: US (occurrence: US)
  Receive Date: 20250811
  Receipt Date: 20251014
  Transmission Date: 20260118
  Serious: Yes (Death, Other)
  Sender: TAKEDA
  Company Number: US-TAKEDA-2025TUS070522

PATIENT
  Age: 86 Year
  Sex: Male
  Weight: 79.4 kg

DRUGS (2)
  1. VEDOLIZUMAB [Suspect]
     Active Substance: VEDOLIZUMAB
     Indication: Colitis
     Dosage: 300 MILLIGRAM
  2. VEDOLIZUMAB [Suspect]
     Active Substance: VEDOLIZUMAB
     Indication: Colitis ulcerative

REACTIONS (35)
  - Death [Fatal]
  - Blast cell count increased [Recovered/Resolved]
  - International normalised ratio increased [Recovered/Resolved]
  - Haemoglobin decreased [Recovered/Resolved]
  - Platelet count decreased [Recovered/Resolved]
  - Carbon dioxide decreased [Recovered/Resolved]
  - Glomerular filtration rate decreased [Recovered/Resolved]
  - Protein total decreased [Recovered/Resolved]
  - Blood fibrinogen decreased [Recovered/Resolved]
  - Prothrombin time prolonged [Recovered/Resolved]
  - Red blood cell schistocytes present [Recovered/Resolved]
  - Haematocrit decreased [Recovered/Resolved]
  - White blood cell count increased [Recovered/Resolved]
  - Red blood cell count decreased [Recovered/Resolved]
  - Red cell distribution width increased [Recovered/Resolved]
  - Lymphocyte count decreased [Recovered/Resolved]
  - Monocyte count increased [Recovered/Resolved]
  - Red blood cell burr cells present [Recovered/Resolved]
  - Poikilocytosis [Recovered/Resolved]
  - Macrocytosis [Recovered/Resolved]
  - Microcytosis [Recovered/Resolved]
  - Blood potassium increased [Recovered/Resolved]
  - Blood urea increased [Recovered/Resolved]
  - Blood urea nitrogen/creatinine ratio increased [Recovered/Resolved]
  - Blood creatinine increased [Recovered/Resolved]
  - Blood glucose increased [Recovered/Resolved]
  - Blood calcium decreased [Recovered/Resolved]
  - Blood albumin decreased [Recovered/Resolved]
  - Blood alkaline phosphatase increased [Recovered/Resolved]
  - Blood lactate dehydrogenase increased [Recovered/Resolved]
  - Promyelocyte count increased [Recovered/Resolved]
  - Metamyelocyte count increased [Recovered/Resolved]
  - Myelocyte count increased [Recovered/Resolved]
  - Aspartate aminotransferase increased [Recovered/Resolved]
  - Blood bilirubin increased [Recovered/Resolved]

NARRATIVE: CASE EVENT DATE: 20250721
